FAERS Safety Report 16873919 (Version 1)
Quarter: 2019Q4

REPORT INFORMATION
  Report Type: Report from Study
  Country: US (occurrence: US)
  Receive Date: 20191001
  Receipt Date: 20191001
  Transmission Date: 20200122
  Serious: Yes (Hospitalization, Other)
  Sender: FDA-Public Use
  Company Number: US-JNJFOC-20190930686

PATIENT
  Sex: Female

DRUGS (1)
  1. CANAGLIFLOZIN [Suspect]
     Active Substance: CANAGLIFLOZIN
     Indication: PRODUCT USED FOR UNKNOWN INDICATION
     Route: 048

REACTIONS (6)
  - Weight decreased [Unknown]
  - Leukaemia [Unknown]
  - Fungal infection [Unknown]
  - Amnesia [Unknown]
  - Urinary tract infection fungal [Unknown]
  - Hospitalisation [Unknown]

NARRATIVE: CASE EVENT DATE: 201902
